FAERS Safety Report 4495861-4 (Version None)
Quarter: 2004Q4

REPORT INFORMATION
  Report Type: 
  Country: None (occurrence: None)
  Receive Date: 20041108
  Receipt Date: 20041028
  Transmission Date: 20050328
  Serious: Yes (Hospitalization)
  Sender: FDA-Public Use
  Company Number: CA-BRISTOL-MYERS SQUIBB COMPANY-12747887

PATIENT
  Age: 54 Year
  Sex: Female
  Weight: 59 kg

DRUGS (9)
  1. CARBOPLATIN [Suspect]
     Indication: OVARIAN CANCER
     Dosage: AUC 5; 495MG 11-AUG-04, 466MG 10-SEP-04; 467MG 08-OCT-04
     Route: 042
     Dates: start: 20041008, end: 20041008
  2. CAELYX [Suspect]
     Indication: OVARIAN CANCER
     Dosage: 11-AUG-2004, 10-SEP-2004, 08-OCT-2004
     Route: 042
     Dates: start: 20041008, end: 20041008
  3. SERAX [Concomitant]
     Indication: ANXIETY
     Route: 048
     Dates: start: 20030514
  4. DOCUSATE SODIUM [Concomitant]
     Indication: CONSTIPATION PROPHYLAXIS
     Dosage: CAPS
     Route: 048
     Dates: start: 20030226
  5. SENOKOT [Concomitant]
     Indication: CONSTIPATION PROPHYLAXIS
     Dosage: TABS
     Route: 048
     Dates: start: 20030509
  6. PROCHLORPERAZINE [Concomitant]
     Indication: PROPHYLAXIS OF NAUSEA AND VOMITING
     Dates: start: 20040811
  7. BENADRYL [Concomitant]
     Indication: PREMEDICATION
     Dates: start: 20040811, end: 20040910
  8. KYTRIL [Concomitant]
     Indication: PREMEDICATION
     Dates: start: 20040811, end: 20040910
  9. DECADRON [Concomitant]
     Indication: PREMEDICATION
     Dates: start: 20040811, end: 20040910

REACTIONS (1)
  - PANIC DISORDER [None]
